FAERS Safety Report 10250807 (Version 1)
Quarter: 2014Q2

REPORT INFORMATION
  Report Type: Spontaneous
  Country: DE (occurrence: DE)
  Receive Date: 20140620
  Receipt Date: 20140620
  Transmission Date: 20141212
  Serious: Yes (Life-Threatening, Hospitalization, Other)
  Sender: FDA-Public Use
  Company Number: DE-ROXANE LABORATORIES, INC.-2014-RO-00936RO

PATIENT
  Sex: 0

DRUGS (6)
  1. METHOTREXATE [Suspect]
     Indication: RHEUMATOID ARTHRITIS
     Route: 048
  2. FLUCONAZOLE [Suspect]
     Indication: MUCOSAL INFLAMMATION
     Route: 065
  3. HEPARIN [Suspect]
     Indication: THROMBOSIS PROPHYLAXIS
     Route: 065
  4. IMIPENEM [Suspect]
     Indication: FEBRILE NEUTROPENIA
     Route: 065
  5. AMIODARONE [Suspect]
     Indication: SUPRAVENTRICULAR TACHYCARDIA
     Route: 065
  6. CIPROFLOXACIN [Suspect]
     Indication: SEPTIC SHOCK
     Route: 065

REACTIONS (8)
  - Septic shock [Unknown]
  - Thrombocytopenia [Unknown]
  - Pancytopenia [Unknown]
  - Febrile neutropenia [Unknown]
  - Mucosal inflammation [Unknown]
  - Supraventricular tachycardia [Unknown]
  - Pseudomonas infection [Unknown]
  - Puncture site haemorrhage [Recovered/Resolved]
